FAERS Safety Report 19533582 (Version 2)
Quarter: 2021Q3

REPORT INFORMATION
  Report Type: Spontaneous
  Country: US (occurrence: US)
  Receive Date: 20210713
  Receipt Date: 20210903
  Transmission Date: 20211014
  Serious: No
  Sender: FDA-Public Use
  Company Number: US-ASTRAZENECA-2021A558236

PATIENT
  Age: 809 Month
  Sex: Female
  Weight: 68.9 kg

DRUGS (2)
  1. BYDUREON BCISE [Suspect]
     Active Substance: EXENATIDE
     Indication: TYPE 2 DIABETES MELLITUS
     Route: 058
     Dates: start: 2021
  2. BYDUREON [Suspect]
     Active Substance: EXENATIDE
     Indication: TYPE 2 DIABETES MELLITUS
     Route: 058
     Dates: start: 20140820

REACTIONS (8)
  - Blood glucose increased [Unknown]
  - Device issue [Unknown]
  - Weight decreased [Recovered/Resolved]
  - Drug effect less than expected [Unknown]
  - Device delivery system issue [Unknown]
  - Device use issue [Unknown]
  - Wrong technique in device usage process [Unknown]
  - Pain in extremity [Unknown]

NARRATIVE: CASE EVENT DATE: 201809
